FAERS Safety Report 6750051-7 (Version None)
Quarter: 2010Q2

REPORT INFORMATION
  Report Type: 
  Country: None (occurrence: None)
  Receive Date: 20100601
  Receipt Date: 20100519
  Transmission Date: 20101027
  Serious: Yes (Death)
  Sender: FDA-Public Use
  Company Number: SE-PFIZER INC-2010046092

PATIENT
  Age: 65 Year
  Sex: Female

DRUGS (11)
  1. SOMATROPIN [Suspect]
     Indication: HYPOPITUITARISM
     Dosage: 0.2 MG, 1X/DAY
     Route: 058
     Dates: start: 20080410
  2. TROMBYL [Concomitant]
     Indication: ANTICOAGULANT THERAPY
     Dosage: 75 MG, 1X/DAY
     Dates: start: 20061208
  3. SALURES [Concomitant]
     Indication: HYPERTENSION
     Dosage: 2.5 MG, 1X/DAY
     Dates: start: 20071211
  4. METOPROLOL - SLOW RELEASE [Concomitant]
     Indication: MYOCARDIAL ISCHAEMIA
     Dosage: 200 MG, 1X/DAY
     Dates: start: 20080312
  5. RAMIPRIL [Concomitant]
     Indication: HYPERTENSION
     Dosage: 5 MG, 2X/DAY
     Dates: start: 20070219
  6. RAMIPRIL [Concomitant]
     Indication: MYOCARDIAL ISCHAEMIA
  7. SIMVASTATIN [Concomitant]
     Indication: HYPERLIPIDAEMIA
     Dosage: 40 MG, 1X/DAY
     Dates: start: 20061208
  8. HYDROCORTISONE ^NYCOMED^ [Concomitant]
     Indication: HORMONE REPLACEMENT THERAPY
     Dosage: 20 MG, ALTERNATE DAY
     Dates: start: 20061215, end: 20090424
  9. HYDROCORTISONE ^NYCOMED^ [Concomitant]
     Dosage: 10 MG, ALTERNATE DAY
     Dates: start: 20090424
  10. LEVOTHYROXINE SODIUM [Concomitant]
     Indication: METABOLIC DISORDER
     Dosage: 75 UG, 1X/DAY
     Dates: start: 20090423
  11. NITROLINGUAL [Concomitant]
     Indication: ANGINA PECTORIS
     Dosage: 1-2 DOSES AS NEEDED
     Route: 060
     Dates: start: 20081111

REACTIONS (2)
  - ARTERIOSCLEROSIS [None]
  - CIRCULATORY COLLAPSE [None]
